FAERS Safety Report 6199837-0 (Version None)
Quarter: 2009Q2

REPORT INFORMATION
  Report Type: 
  Country: None (occurrence: None)
  Receive Date: 20090518
  Receipt Date: 20090210
  Transmission Date: 20091009
  Serious: Yes (Life-Threatening, Hospitalization, Disabling, Other)
  Sender: FDA-Public Use
  Company Number: WAES 0902USA01785

PATIENT
  Sex: Male

DRUGS (8)
  1. JANUVIA [Suspect]
     Indication: DIABETES MELLITUS
     Dosage: /PO
     Route: 048
  2. ACTOS [Concomitant]
  3. ADVAIR HFA [Concomitant]
  4. K-DUR [Concomitant]
  5. LASIX [Concomitant]
  6. PROZAC [Concomitant]
  7. BENZAPERIL HYDROCHLORIDE [Concomitant]
  8. SIMVASTATIN [Concomitant]

REACTIONS (1)
  - ANGIOEDEMA [None]
